FAERS Safety Report 9346408 (Version 1)
Quarter: 2013Q2

REPORT INFORMATION
  Report Type: Spontaneous
  Country: FR (occurrence: FR)
  Receive Date: 20130613
  Receipt Date: 20130613
  Transmission Date: 20140414
  Serious: Yes (Life-Threatening)
  Sender: FDA-Public Use
  Company Number: FR-ROCHE-1235030

PATIENT
  Age: 50 Year
  Sex: Male

DRUGS (9)
  1. VALIUM [Suspect]
     Indication: PRODUCT USED FOR UNKNOWN INDICATION
     Route: 048
     Dates: end: 20130517
  2. RIVOTRIL [Interacting]
     Indication: PRODUCT USED FOR UNKNOWN INDICATION
     Dosage: 2.5 MG/ML
     Route: 048
     Dates: end: 20130517
  3. DEPAMIDE [Interacting]
     Indication: PRODUCT USED FOR UNKNOWN INDICATION
     Route: 048
     Dates: end: 20130517
  4. LEPTICUR [Interacting]
     Indication: PRODUCT USED FOR UNKNOWN INDICATION
     Dosage: 10 MG
     Route: 048
  5. QUITAXON [Interacting]
     Indication: PRODUCT USED FOR UNKNOWN INDICATION
     Route: 048
     Dates: end: 20130517
  6. CLOZAPINE [Interacting]
     Indication: PRODUCT USED FOR UNKNOWN INDICATION
     Route: 048
     Dates: end: 20130517
  7. CLOMIPRAMINE [Interacting]
     Indication: PRODUCT USED FOR UNKNOWN INDICATION
     Route: 048
     Dates: end: 20130517
  8. DUPHALAC [Concomitant]
     Route: 048
  9. PARACETAMOL [Concomitant]
     Route: 048

REACTIONS (5)
  - Pneumonia aspiration [Recovering/Resolving]
  - Respiratory distress [Recovered/Resolved]
  - Urinary retention [Recovered/Resolved]
  - Intestinal obstruction [Recovered/Resolved]
  - Drug interaction [Unknown]
